FAERS Safety Report 7547011-5 (Version None)
Quarter: 2011Q2

REPORT INFORMATION
  Report Type: 
  Country: None (occurrence: None)
  Receive Date: 20110614
  Receipt Date: 20110606
  Transmission Date: 20111010
  Serious: Yes (Hospitalization)
  Sender: FDA-Public Use
  Company Number: PHHY2011GB48981

PATIENT
  Age: 82 Year
  Sex: Male
  Weight: 58.96 kg

DRUGS (11)
  1. AMIODARONE HYDROCHLORIDE [Suspect]
     Indication: ATRIAL FIBRILLATION
     Dosage: 200 MG, QD
     Route: 048
     Dates: start: 20070101, end: 20110125
  2. AQUEOUS CREAM [Concomitant]
  3. CO-BENELDOPA [Concomitant]
  4. MOMETASONE FUROATE [Concomitant]
  5. TACROLIMUS [Concomitant]
  6. ISOSORBIDE MONONITRATE [Concomitant]
  7. EPADERM [Concomitant]
  8. TIOTROPIUM BROMIDE [Concomitant]
  9. NITROGLYCERIN [Concomitant]
  10. ALBUTEROL [Concomitant]
  11. SIMVASTATIN [Concomitant]

REACTIONS (4)
  - HYPERTHYROIDISM [None]
  - MOBILITY DECREASED [None]
  - CONFUSIONAL STATE [None]
  - FALL [None]
